FAERS Safety Report 7240942-5 (Version None)
Quarter: 2011Q1

REPORT INFORMATION
  Report Type: 
  Country: None (occurrence: None)
  Receive Date: 20110120
  Receipt Date: 20110120
  Transmission Date: 20110831
  Serious: Yes (Other)
  Sender: FDA-Public Use
  Company Number: None

PATIENT
  Age: 23 Year
  Sex: Female
  Weight: 108.8633 kg

DRUGS (3)
  1. ZYRTEC [Suspect]
  2. METFORMIN HYDROCHLORIDE [Suspect]
     Indication: POLYCYSTIC OVARIES
     Dosage: 1 PILL (500MG) 2X DAY ORAL (047)
     Route: 048
     Dates: start: 20101101, end: 20110101
  3. MULTIVITMAN [Concomitant]

REACTIONS (2)
  - DEPRESSION [None]
  - SUICIDAL IDEATION [None]
